FAERS Safety Report 7212626-0 (Version None)
Quarter: 2011Q1

REPORT INFORMATION
  Report Type: 
  Country: None (occurrence: None)
  Receive Date: 20110106
  Receipt Date: 20101224
  Transmission Date: 20110831
  Serious: Yes (Other)
  Sender: FDA-Public Use
  Company Number: PHEH2007US07643

PATIENT
  Sex: Female

DRUGS (8)
  1. ZOMETA [Suspect]
     Indication: MULTIPLE MYELOMA
  2. CALCIUM [Concomitant]
  3. MS CONTIN [Concomitant]
  4. COMPAZINE [Concomitant]
  5. MULTI-VITAMINS [Concomitant]
  6. LISINOPRIL [Concomitant]
  7. BISPHOSPHONATES [Suspect]
  8. AREDIA [Suspect]

REACTIONS (32)
  - SPINAL COMPRESSION FRACTURE [None]
  - CARDIOMEGALY [None]
  - SWELLING [None]
  - SPINAL OSTEOARTHRITIS [None]
  - CYSTITIS [None]
  - BRONCHITIS [None]
  - NEOPLASM MALIGNANT [None]
  - PLEURAL EFFUSION [None]
  - OSTEOPENIA [None]
  - OSTEOARTHRITIS [None]
  - PNEUMONIA [None]
  - MIGRAINE [None]
  - SQUAMOUS CELL CARCINOMA [None]
  - PYREXIA [None]
  - BLOOD GLUCOSE INCREASED [None]
  - LYMPHOPENIA [None]
  - VASCULAR CALCIFICATION [None]
  - DEPRESSION [None]
  - GINGIVAL PAIN [None]
  - OSTEONECROSIS OF JAW [None]
  - LOCALISED INFECTION [None]
  - RENAL FAILURE ACUTE [None]
  - PURULENCE [None]
  - MYELODYSPLASTIC SYNDROME [None]
  - LACTOSE INTOLERANCE [None]
  - CARDIAC FAILURE CONGESTIVE [None]
  - BONE DISORDER [None]
  - LEUKOPENIA [None]
  - OSTEOLYSIS [None]
  - OSTEOMYELITIS [None]
  - TRIGGER FINGER [None]
  - RENAL FAILURE CHRONIC [None]
